FAERS Safety Report 25488515 (Version 2)
Quarter: 2025Q3

REPORT INFORMATION
  Report Type: Spontaneous
  Country: RU (occurrence: RU)
  Receive Date: 20250627
  Receipt Date: 20250707
  Transmission Date: 20251020
  Serious: Yes (Hospitalization)
  Sender: TAKEDA
  Company Number: RU-LUNDBECK-DKLU4016167

PATIENT
  Age: 20 Year
  Sex: Female

DRUGS (2)
  1. BRINTELLIX [Suspect]
     Active Substance: VORTIOXETINE HYDROBROMIDE
     Indication: Suicide attempt
     Dosage: 100 MILLIGRAM, QD
     Dates: start: 20250619, end: 20250619
  2. VALPROATE SODIUM [Suspect]
     Active Substance: VALPROATE SODIUM
     Indication: Suicide attempt
     Dosage: 6000 MILLIGRAM, QD
     Dates: start: 20250619, end: 20250619

REACTIONS (4)
  - Dizziness [Recovered/Resolved]
  - Asthenia [Recovered/Resolved]
  - Nausea [Recovered/Resolved]
  - Intentional overdose [Unknown]

NARRATIVE: CASE EVENT DATE: 20250619
